FAERS Safety Report 10431542 (Version 3)
Quarter: 2015Q1

REPORT INFORMATION
  Report Type: Spontaneous
  Country: DE (occurrence: DE)
  Receive Date: 20140904
  Receipt Date: 20150312
  Transmission Date: 20150720
  Serious: Yes (Other)
  Sender: FDA-Public Use
  Company Number: DE-BAXTER-2014BAX051949

PATIENT
  Sex: Male
  Weight: 75 kg

DRUGS (5)
  1. KIOVIG [Suspect]
     Active Substance: HUMAN IMMUNOGLOBULIN G
     Indication: PRODUCT USED FOR UNKNOWN INDICATION
     Route: 042
     Dates: start: 20140818, end: 20140818
  2. FENISTIL [Suspect]
     Active Substance: DIMETHINDENE
     Indication: ADVERSE EVENT
     Dosage: 1 MG / ML, 1 VIAL
     Route: 042
     Dates: start: 20140818, end: 20140818
  3. KIOVIG [Suspect]
     Active Substance: HUMAN IMMUNOGLOBULIN G
     Indication: PRODUCT USED FOR UNKNOWN INDICATION
     Route: 042
     Dates: start: 20140818, end: 20140818
  4. SOLU DECORTIN H [Suspect]
     Active Substance: PREDNISOLONE SODIUM SUCCINATE
     Indication: ADVERSE EVENT
     Route: 042
     Dates: start: 20140818, end: 20140818
  5. KIOVIG [Suspect]
     Active Substance: HUMAN IMMUNOGLOBULIN G
     Route: 042
     Dates: start: 20140818, end: 20140818

REACTIONS (15)
  - Swelling face [Recovered/Resolved]
  - Feeling abnormal [Recovered/Resolved]
  - Lip disorder [Recovered/Resolved]
  - Pruritus [Recovered/Resolved]
  - Erythema [Recovered/Resolved]
  - Dry skin [Recovered/Resolved]
  - Skin tightness [Recovered/Resolved]
  - Throat irritation [Recovered/Resolved]
  - Ear discomfort [Recovered/Resolved]
  - Rash macular [Recovered/Resolved]
  - Skin wrinkling [Recovered/Resolved]
  - Urticaria [Recovered/Resolved]
  - Erythema [Recovered/Resolved]
  - Anal pruritus [Recovered/Resolved]
  - Feeling hot [Recovered/Resolved]

NARRATIVE: CASE EVENT DATE: 20140818
